FAERS Safety Report 13623416 (Version 1)
Quarter: 2017Q2

REPORT INFORMATION
  Report Type: Spontaneous
  Country: CA (occurrence: CA)
  Receive Date: 20170608
  Receipt Date: 20170608
  Transmission Date: 20170830
  Serious: Yes (Other)
  Sender: FDA-Public Use
  Company Number: CA-ASTRAZENECA-2017SE59477

PATIENT
  Age: 66 Year
  Sex: Female
  Weight: 111.1 kg

DRUGS (10)
  1. SYMBICORT [Suspect]
     Active Substance: BUDESONIDE\FORMOTEROL FUMARATE DIHYDRATE
     Indication: CHRONIC OBSTRUCTIVE PULMONARY DISEASE
     Dosage: 1DF,2 EVERY 1 HOUR
     Route: 055
  2. GABAPENTIN. [Concomitant]
     Active Substance: GABAPENTIN
  3. SYMBICORT [Suspect]
     Active Substance: BUDESONIDE\FORMOTEROL FUMARATE DIHYDRATE
     Indication: ASTHMA
     Dosage: 1DF,2 EVERY 1 HOUR
     Route: 055
  4. SYNTHROID [Concomitant]
     Active Substance: LEVOTHYROXINE SODIUM
  5. SERC [Concomitant]
     Active Substance: BETAHISTINE HYDROCHLORIDE
  6. COVERSYL [Concomitant]
     Active Substance: PERINDOPRIL
  7. HYDRASENSE CONGESTION RELIEF [Concomitant]
  8. TECTA [Concomitant]
     Active Substance: PANTOPRAZOLE MAGNESIUM
  9. LITHIUM. [Concomitant]
     Active Substance: LITHIUM
  10. TYLENOL [Concomitant]
     Active Substance: ACETAMINOPHEN

REACTIONS (6)
  - Vision blurred [Recovering/Resolving]
  - Immune system disorder [Recovering/Resolving]
  - Diplopia [Recovering/Resolving]
  - Gait disturbance [Recovering/Resolving]
  - Hypomania [Recovering/Resolving]
  - Insomnia [Recovering/Resolving]
